FAERS Safety Report 20778690 (Version 1)
Quarter: 2022Q2

REPORT INFORMATION
  Report Type: Spontaneous
  Country: US (occurrence: None)
  Receive Date: 20220503
  Receipt Date: 20220503
  Transmission Date: 20220720
  Serious: Yes (Life-Threatening, Disabling, Other)
  Sender: FDA-Public Use
  Company Number: None

PATIENT
  Age: 59 Year
  Sex: Female
  Weight: 76.66 kg

DRUGS (1)
  1. OCREVUS [Suspect]
     Active Substance: OCRELIZUMAB
     Indication: Multiple sclerosis
     Dosage: OTHER FREQUENCY : Q 6 MONTHS;?
     Route: 042
     Dates: start: 2017, end: 20211023

REACTIONS (2)
  - Biopsy breast [None]
  - Breast cancer [None]

NARRATIVE: CASE EVENT DATE: 20220201
